FAERS Safety Report 16570726 (Version 2)
Quarter: 2019Q3

REPORT INFORMATION
  Report Type: Spontaneous
  Country: IT (occurrence: IT)
  Receive Date: 20190715
  Receipt Date: 20190726
  Transmission Date: 20191004
  Serious: Yes (Hospitalization)
  Sender: FDA-Public Use
  Company Number: IT-TEVA-2019-IT-1077027

PATIENT
  Age: 48 Year
  Sex: Female

DRUGS (5)
  1. NAPROXEN. [Suspect]
     Active Substance: NAPROXEN
     Indication: PSORIATIC ARTHROPATHY
     Dosage: 750 MILLIGRAM DAILY;
     Route: 048
     Dates: start: 20190416, end: 20190605
  2. DULOXETINE HYDROCHLORIDE. [Suspect]
     Active Substance: DULOXETINE HYDROCHLORIDE
     Indication: DEPRESSION
     Dosage: 60 MILLIGRAM DAILY;
     Route: 048
     Dates: start: 20170720, end: 20190605
  3. ESOMEPRAZOLE SODIUM. [Concomitant]
     Active Substance: ESOMEPRAZOLE SODIUM
  4. LEFLUNOMIDE. [Concomitant]
     Active Substance: LEFLUNOMIDE
  5. BENEPALI 25 MG SOLUTION FOR INJECTION IN PRE-FILLED SYRINGE [Concomitant]

REACTIONS (1)
  - Hypertensive crisis [Recovering/Resolving]

NARRATIVE: CASE EVENT DATE: 20190605
